FAERS Safety Report 9553498 (Version 1)
Quarter: 2013Q3

REPORT INFORMATION
  Report Type: Spontaneous
  Country: BR (occurrence: BR)
  Receive Date: 20130925
  Receipt Date: 20130925
  Transmission Date: 20140515
  Serious: Yes (Other)
  Sender: FDA-Public Use
  Company Number: BR-PFIZER INC-2013271990

PATIENT
  Age: 61 Year
  Sex: Female

DRUGS (4)
  1. CITALOR [Suspect]
     Indication: BLOOD TRIGLYCERIDES
     Dosage: 10 MG (ONE TABLET), 1X/DAY
     Dates: start: 2008
  2. ICTUS [Concomitant]
     Indication: CARDIAC DISORDER
     Dosage: UNK
     Dates: start: 2011
  3. INDAPEN [Concomitant]
     Indication: BLOOD PRESSURE INCREASED
     Dosage: UNK
     Dates: start: 2008
  4. LEXOTAN [Concomitant]
     Indication: ANTIDEPRESSANT THERAPY
     Dosage: UNK
     Dates: start: 2008

REACTIONS (2)
  - Breast cancer [Unknown]
  - Diabetes mellitus [Unknown]
